FAERS Safety Report 21812401 (Version 1)
Quarter: 2022Q4

REPORT INFORMATION
  Report Type: Spontaneous
  Country: US (occurrence: None)
  Receive Date: 20221230
  Receipt Date: 20221230
  Transmission Date: 20230113
  Serious: Yes (Hospitalization, Other)
  Sender: FDA-Public Use
  Company Number: None

PATIENT
  Age: 66 Year
  Sex: Female
  Weight: 69.75 kg

DRUGS (14)
  1. RECLAST [Suspect]
     Active Substance: ZOLEDRONIC ACID
     Indication: Osteoporosis
     Route: 042
     Dates: start: 20221123, end: 20221123
  2. One A Day Women 50+ [Concomitant]
  3. DIETARY SUPPLEMENT [Concomitant]
     Active Substance: DIETARY SUPPLEMENT
  4. Vitamin B12 [Concomitant]
  5. VITAMIN D3 [Concomitant]
     Active Substance: CHOLECALCIFEROL
  6. VITAMIN C [Concomitant]
     Active Substance: ASCORBIC ACID
  7. FISH OIL [Concomitant]
     Active Substance: FISH OIL
  8. KRILL OIL [Concomitant]
     Active Substance: DIETARY SUPPLEMENT\KRILL OIL
  9. FLAXSEED [Concomitant]
     Active Substance: FLAX SEED
  10. PROBIOTICS NOS [Concomitant]
     Active Substance: PROBIOTICS NOS
  11. cocoa via [Concomitant]
  12. APPLE PECTIN [Concomitant]
  13. DIETARY SUPPLEMENT [Concomitant]
     Active Substance: DIETARY SUPPLEMENT
  14. MELATONIN [Concomitant]
     Active Substance: MELATONIN

REACTIONS (6)
  - Back pain [None]
  - Depressed level of consciousness [None]
  - Vomiting [None]
  - Pain in extremity [None]
  - Musculoskeletal chest pain [None]
  - Presyncope [None]

NARRATIVE: CASE EVENT DATE: 20221124
